FAERS Safety Report 10273753 (Version 1)
Quarter: 2014Q2

REPORT INFORMATION
  Report Type: Spontaneous
  Country: US (occurrence: None)
  Receive Date: 20140630
  Receipt Date: 20140630
  Transmission Date: 20141212
  Serious: Yes (Other)
  Sender: FDA-Public Use
  Company Number: None

PATIENT
  Age: 55 Year
  Sex: Male
  Weight: 69 kg

DRUGS (4)
  1. AVASTIN [Suspect]
     Indication: LUNG NEOPLASM MALIGNANT
     Route: 042
     Dates: start: 20140626
  2. CARBOPLATIN [Suspect]
  3. ALIMTA [Concomitant]
  4. CARBOPLATIN [Concomitant]

REACTIONS (4)
  - Wheezing [None]
  - Dyspnoea [None]
  - Dry skin [None]
  - Blood pressure decreased [None]
